FAERS Safety Report 8189325-4 (Version None)
Quarter: 2012Q1

REPORT INFORMATION
  Report Type: 
  Country: None (occurrence: None)
  Receive Date: 20120307
  Receipt Date: 20120224
  Transmission Date: 20120608
  Serious: Yes (Other)
  Sender: FDA-Public Use
  Company Number: US-SANOFI-AVENTIS-2012SA004613

PATIENT
  Age: 59 Year
  Sex: Female

DRUGS (5)
  1. METFORMIN HCL [Concomitant]
  2. LANTUS [Suspect]
     Indication: TYPE 2 DIABETES MELLITUS
     Dosage: DOSE:70 UNIT(S)
     Route: 058
  3. LANTUS [Suspect]
     Dosage: DOSE:68 UNIT(S)
     Route: 058
     Dates: start: 20070101
  4. ALL OTHER THERAPEUTIC PRODUCTS [Concomitant]
  5. NOVOLOG [Concomitant]
     Dosage: WITH A SLIDING SCALE FOR MEALS

REACTIONS (9)
  - CHRONIC OBSTRUCTIVE PULMONARY DISEASE [None]
  - BRONCHITIS [None]
  - HYPERGLYCAEMIA [None]
  - CHEST DISCOMFORT [None]
  - BLOOD GLUCOSE DECREASED [None]
  - COLD SWEAT [None]
  - SURGERY [None]
  - GLYCOSYLATED HAEMOGLOBIN INCREASED [None]
  - PULMONARY OEDEMA [None]
